FAERS Safety Report 12567003 (Version 1)
Quarter: 2016Q3

REPORT INFORMATION
  Report Type: Report from Study
  Country: CA (occurrence: CA)
  Receive Date: 20160718
  Receipt Date: 20160718
  Transmission Date: 20161109
  Serious: Yes (Other)
  Sender: FDA-Public Use
  Company Number: PHHY2016CA094549

PATIENT
  Sex: Female

DRUGS (1)
  1. SANDOSTATIN LAR DEPOT [Suspect]
     Active Substance: OCTREOTIDE ACETATE
     Indication: PANCREATIC NEUROENDOCRINE TUMOUR
     Dosage: UNK
     Route: 030

REACTIONS (7)
  - Limb injury [Unknown]
  - Flushing [Unknown]
  - Blood glucose decreased [Unknown]
  - Hand fracture [Unknown]
  - Fall [Unknown]
  - Diarrhoea [Unknown]
  - Nausea [Unknown]
